FAERS Safety Report 21830743 (Version 1)
Quarter: 2023Q1

REPORT INFORMATION
  Report Type: Spontaneous
  Country: US (occurrence: None)
  Receive Date: 20230106
  Receipt Date: 20230106
  Transmission Date: 20230418
  Serious: No
  Sender: FDA-Public Use
  Company Number: None

PATIENT
  Age: 56 Year
  Sex: Male

DRUGS (1)
  1. SKYRIZI [Suspect]
     Active Substance: RISANKIZUMAB-RZAA
     Indication: Psoriatic arthropathy
     Dosage: OTHER FREQUENCY : EVERY 12 WEEKS;?
     Route: 058
     Dates: start: 202206

REACTIONS (5)
  - Psoriatic arthropathy [None]
  - Drug ineffective [None]
  - Device malfunction [None]
  - Needle issue [None]
  - Drug dose omission by device [None]

NARRATIVE: CASE EVENT DATE: 20230101
